FAERS Safety Report 7799504-3 (Version None)
Quarter: 2011Q4

REPORT INFORMATION
  Report Type: 
  Country: None (occurrence: None)
  Receive Date: 20111006
  Receipt Date: 20111003
  Transmission Date: 20120403
  Serious: Yes (Death, Other)
  Sender: FDA-Public Use
  Company Number: IT-SANOFI-AVENTIS-2011SA065137

PATIENT
  Age: 81 Year
  Sex: Female

DRUGS (12)
  1. ATARAX [Concomitant]
  2. CETIRIZINE HCL [Concomitant]
  3. FLUDARA [Suspect]
     Indication: NON-HODGKIN'S LYMPHOMA
     Route: 065
  4. HALDOL [Concomitant]
  5. FUROSEMIDE [Concomitant]
  6. RAMIPRIL [Concomitant]
  7. CALCIUM CARBONATE [Concomitant]
  8. FLUTICASONE PROPIONATE/SALMETEROL [Concomitant]
  9. ALLOPURINOL [Concomitant]
  10. ESCITALOPRAM [Concomitant]
  11. LEVOTHYROXINE SODIUM [Concomitant]
  12. ESOPRAL [Concomitant]

REACTIONS (5)
  - CARDIOGENIC SHOCK [None]
  - DEHYDRATION [None]
  - DIARRHOEA [None]
  - RENAL FAILURE [None]
  - VOMITING [None]
